FAERS Safety Report 25635584 (Version 2)
Quarter: 2025Q3

REPORT INFORMATION
  Report Type: Spontaneous
  Country: JP (occurrence: JP)
  Receive Date: 20250802
  Receipt Date: 20250902
  Transmission Date: 20251020
  Serious: Yes (Hospitalization, Other)
  Sender: TAKEDA
  Company Number: JP-TAKEDA-2025TUS069011

PATIENT
  Age: 19 Year
  Sex: Male

DRUGS (1)
  1. LIALDA [Suspect]
     Active Substance: MESALAMINE
     Indication: Colitis ulcerative
     Dosage: 4800 MILLIGRAM, QD

REACTIONS (5)
  - Decreased appetite [Recovering/Resolving]
  - Malaise [Recovering/Resolving]
  - Drug intolerance [Recovering/Resolving]
  - Colitis ulcerative [Recovering/Resolving]
  - Drug ineffective [Unknown]
